FAERS Safety Report 20540412 (Version 1)
Quarter: 2022Q1

REPORT INFORMATION
  Report Type: Spontaneous
  Country: US (occurrence: US)
  Receive Date: 20220302
  Receipt Date: 20220302
  Transmission Date: 20220423
  Serious: No
  Sender: FDA-Public Use
  Company Number: US-BAUSCH-BL-2022-005448

PATIENT
  Age: 62 Year
  Sex: Male
  Weight: 68.100 kg

DRUGS (2)
  1. DEXAMETHASONE\NEOMYCIN\POLYMYXIN B SULFATE [Suspect]
     Active Substance: DEXAMETHASONE\NEOMYCIN\POLYMYXIN B SULFATE
     Indication: Ulcerative keratitis
     Route: 065
     Dates: start: 20220222
  2. DEXAMETHASONE\NEOMYCIN\POLYMYXIN B SULFATE [Suspect]
     Active Substance: DEXAMETHASONE\NEOMYCIN\POLYMYXIN B SULFATE
     Route: 065
     Dates: start: 20220222

REACTIONS (2)
  - Blepharospasm [Recovering/Resolving]
  - Headache [Not Recovered/Not Resolved]

NARRATIVE: CASE EVENT DATE: 20220222
